FAERS Safety Report 20166437 (Version 2)
Quarter: 2021Q4

REPORT INFORMATION
  Report Type: Spontaneous
  Country: US (occurrence: US)
  Receive Date: 20211209
  Receipt Date: 20211224
  Transmission Date: 20220303
  Serious: Yes (Other)
  Sender: FDA-Public Use
  Company Number: US-TEVA-2021-US-1984957

PATIENT
  Age: 11 Year
  Sex: Female

DRUGS (1)
  1. ALBUTEROL [Suspect]
     Active Substance: ALBUTEROL
     Indication: Asthma
     Route: 065

REACTIONS (6)
  - Mood altered [Unknown]
  - Delusion [Unknown]
  - Paranoia [Unknown]
  - Anxiety [Unknown]
  - Bronchospasm paradoxical [Unknown]
  - Abnormal behaviour [Unknown]
